FAERS Safety Report 8975690 (Version 1)
Quarter: 2012Q4

REPORT INFORMATION
  Report Type: 
  Country: US (occurrence: US)
  Receive Date: 20121219
  Receipt Date: 20121219
  Transmission Date: 20130627
  Serious: Yes (Other)
  Sender: FDA-Public Use
  Company Number: US-BAYER-2012-133222

PATIENT
  Age: 50 Year
  Sex: Male

DRUGS (2)
  1. MAGNEVIST [Suspect]
     Indication: CARDIAC IMAGING PROCEDURE
     Dosage: 44 ml, UNK
     Route: 042
     Dates: start: 20121218, end: 20121218
  2. MAGNEVIST [Suspect]
     Indication: CARDIOMYOPATHY

REACTIONS (5)
  - Dyspnoea [None]
  - Chest pain [None]
  - Cough [None]
  - Vomiting [None]
  - Unevaluable event [None]
